FAERS Safety Report 6146571-9 (Version None)
Quarter: 2009Q2

REPORT INFORMATION
  Report Type: 
  Country: None (occurrence: None)
  Receive Date: 20090403
  Receipt Date: 20090403
  Transmission Date: 20091009
  Serious: Yes (Other)
  Sender: FDA-Public Use
  Company Number: None

PATIENT
  Sex: Male
  Weight: 90.7194 kg

DRUGS (2)
  1. DEPAKOTE ER [Suspect]
     Indication: BIPOLAR DISORDER
     Dosage: 2000 MG DAILY PO
     Route: 048
     Dates: start: 20021107
  2. DEPAKOTE [Suspect]
     Indication: BIPOLAR DISORDER
     Dosage: 250MG DAILY PO PRIOR 4-11-00
     Route: 048

REACTIONS (2)
  - GRAND MAL CONVULSION [None]
  - PETIT MAL EPILEPSY [None]
